FAERS Safety Report 7310892-4 (Version None)
Quarter: 2011Q1

REPORT INFORMATION
  Report Type: 
  Country: None (occurrence: None)
  Receive Date: 20110224
  Receipt Date: 20110209
  Transmission Date: 20110831
  Serious: Yes (Death, Hospitalization)
  Sender: FDA-Public Use
  Company Number: JP-CELGENEUS-087-20785-11021415

PATIENT
  Age: 57 Year
  Sex: Male

DRUGS (2)
  1. PREDNISOLONE [Concomitant]
     Indication: POEMS SYNDROME
     Route: 048
  2. THALOMID [Suspect]
     Indication: POEMS SYNDROME
     Route: 048

REACTIONS (2)
  - CALCIPHYLAXIS [None]
  - CARDIOPULMONARY FAILURE [None]
